FAERS Safety Report 18157763 (Version 1)
Quarter: 2020Q3

REPORT INFORMATION
  Report Type: Other
  Country: JP (occurrence: JP)
  Receive Date: 20200817
  Receipt Date: 20200817
  Transmission Date: 20201103
  Serious: Yes (Hospitalization)
  Sender: FDA-Public Use
  Company Number: JP-AJANTA PHARMA USA INC.-2088687

PATIENT
  Age: 18 Year
  Sex: Female

DRUGS (5)
  1. VILDAGLIPTIN [Suspect]
     Active Substance: VILDAGLIPTIN
  2. METFORMIN (ANDA 213651) [Suspect]
     Active Substance: METFORMIN HYDROCHLORIDE
     Indication: SUICIDE ATTEMPT
  3. GLIMEPIRIDE. [Concomitant]
     Active Substance: GLIMEPIRIDE
  4. DAPAGLIFLOZIN. [Concomitant]
     Active Substance: DAPAGLIFLOZIN
  5. ATORVASTATIN CALCIUM. [Concomitant]
     Active Substance: ATORVASTATIN CALCIUM

REACTIONS (10)
  - Capillary leak syndrome [Recovered/Resolved]
  - Disseminated intravascular coagulation [Unknown]
  - Shock [Recovered/Resolved]
  - Acute kidney injury [Unknown]
  - Suicide attempt [Recovered/Resolved]
  - Pneumonia aspiration [Unknown]
  - Lactic acidosis [Unknown]
  - Overdose [Recovered/Resolved]
  - Compartment syndrome [Recovered/Resolved]
  - Loss of consciousness [Recovered/Resolved]
